FAERS Safety Report 11653496 (Version 3)
Quarter: 2016Q1

REPORT INFORMATION
  Report Type: Report from Study
  Country: US (occurrence: US)
  Receive Date: 20151022
  Receipt Date: 20160216
  Transmission Date: 20160525
  Serious: Yes (Hospitalization, Other)
  Sender: FDA-Public Use
  Company Number: US-AMGEN-USASL2015109722

PATIENT
  Age: 44 Year
  Sex: Female

DRUGS (9)
  1. DILAUDID [Concomitant]
     Active Substance: HYDROMORPHONE HYDROCHLORIDE
     Indication: PAIN
     Dosage: UNK UNK, AS NECESSARY
  2. OXYCODONE                          /00045603/ [Concomitant]
     Active Substance: OXYCODONE
     Indication: PAIN
  3. BLINCYTO [Suspect]
     Active Substance: BLINATUMOMAB
     Indication: B PRECURSOR TYPE ACUTE LEUKAEMIA
     Dosage: 28 MUG, CYCLICAL
     Route: 065
     Dates: start: 20151006, end: 20160204
  4. SENNA                              /00142201/ [Concomitant]
     Active Substance: SENNA LEAF
  5. DOCUSATE [Concomitant]
     Active Substance: DOCUSATE
  6. PANTOPRAZOLE [Concomitant]
     Active Substance: PANTOPRAZOLE SODIUM
  7. COMPAZINE [Concomitant]
     Active Substance: PROCHLORPERAZINE MALEATE
     Indication: NAUSEA
  8. ONDANSETRON [Concomitant]
     Active Substance: ONDANSETRON
  9. MORPHINE [Concomitant]
     Active Substance: MORPHINE

REACTIONS (4)
  - Hepatic enzyme increased [Unknown]
  - Acute lymphocytic leukaemia recurrent [Unknown]
  - Abdominal mass [Unknown]
  - Malaise [Unknown]

NARRATIVE: CASE EVENT DATE: 2015
